FAERS Safety Report 25719253 (Version 1)
Quarter: 2025Q3

REPORT INFORMATION
  Report Type: Spontaneous
  Country: JP (occurrence: JP)
  Receive Date: 20250824
  Receipt Date: 20250824
  Transmission Date: 20251020
  Serious: Yes (Hospitalization)
  Sender: AMGEN
  Company Number: JP-TAKEDA-2025TJP008320

PATIENT
  Age: 72 Year
  Sex: Female

DRUGS (9)
  1. VECTIBIX [Suspect]
     Active Substance: PANITUMUMAB
     Indication: Colorectal cancer recurrent
     Dosage: 6 MILLIGRAM/KILOGRAM, Q2WEEKS
     Route: 041
     Dates: start: 20250108
  2. VECTIBIX [Suspect]
     Active Substance: PANITUMUMAB
     Dosage: 6 MILLIGRAM/KILOGRAM, Q2WEEKS
     Route: 041
     Dates: start: 202507
  3. OXALIPLATIN [Suspect]
     Active Substance: OXALIPLATIN
     Indication: Colorectal cancer recurrent
     Route: 065
     Dates: start: 20250108, end: 20250402
  4. OXALIPLATIN [Suspect]
     Active Substance: OXALIPLATIN
     Route: 065
     Dates: start: 20250416
  5. OXALIPLATIN [Suspect]
     Active Substance: OXALIPLATIN
     Route: 065
     Dates: start: 202507
  6. LEVOLEUCOVORIN [Suspect]
     Active Substance: LEVOLEUCOVORIN
     Indication: Colorectal cancer recurrent
     Route: 065
     Dates: start: 20250108, end: 202505
  7. LEVOLEUCOVORIN [Suspect]
     Active Substance: LEVOLEUCOVORIN
     Route: 065
     Dates: start: 202507
  8. FLUOROURACIL [Suspect]
     Active Substance: FLUOROURACIL
     Indication: Colorectal cancer recurrent
     Route: 065
     Dates: start: 20250108, end: 202505
  9. FLUOROURACIL [Suspect]
     Active Substance: FLUOROURACIL
     Route: 065
     Dates: start: 202507

REACTIONS (3)
  - Fracture [Unknown]
  - Infusion related reaction [Unknown]
  - Blood potassium increased [Unknown]

NARRATIVE: CASE EVENT DATE: 20250108
